FAERS Safety Report 20716237 (Version 1)
Quarter: 2022Q2

REPORT INFORMATION
  Report Type: Spontaneous
  Country: US (occurrence: US)
  Receive Date: 20220416
  Receipt Date: 20220416
  Transmission Date: 20220720
  Serious: No
  Sender: FDA-Public Use
  Company Number: US-ALLERGAN-2201427US

PATIENT
  Sex: Female

DRUGS (1)
  1. LILETTA [Suspect]
     Active Substance: LEVONORGESTREL
     Indication: Contraception
     Dosage: 52 MG, SINGLE
     Route: 015

REACTIONS (4)
  - Emotional disorder [Not Recovered/Not Resolved]
  - Uterine spasm [Not Recovered/Not Resolved]
  - Intermenstrual bleeding [Not Recovered/Not Resolved]
  - Acne [Not Recovered/Not Resolved]
